FAERS Safety Report 23513071 (Version 1)
Quarter: 2024Q1

REPORT INFORMATION
  Report Type: Spontaneous
  Country: US (occurrence: None)
  Receive Date: 20240209
  Receipt Date: 20240209
  Transmission Date: 20240409
  Serious: Yes (Hospitalization)
  Sender: FDA-Public Use
  Company Number: None

PATIENT
  Sex: Female

DRUGS (11)
  1. TOBRAMYCIN [Suspect]
     Active Substance: TOBRAMYCIN
     Indication: Cystic fibrosis
     Dosage: 300 MG/5ML  INHALATION?? TAKE 5 ML BY NEBULIZER TWICE DAILY FOR 28 DAYS ON/ 28 DAYS OFF
     Route: 055
     Dates: start: 20231005
  2. ALBUTEROL AER HFA [Concomitant]
  3. AZITHROMYCIN [Concomitant]
     Active Substance: AZITHROMYCIN
  4. CREON [Concomitant]
     Active Substance: PANCRELIPASE AMYLASE\PANCRELIPASE LIPASE\PANCRELIPASE PROTEASE
  5. CYPROHEPTAD [Concomitant]
  6. LEVEMIR INJ FLEXTOUCH [Concomitant]
  7. MULTIVITAMIN CHW CHILD [Concomitant]
  8. PULMOZYME SOL [Concomitant]
  9. SODIUM CHLOR NEB [Concomitant]
  10. TRIKAFTA [Concomitant]
     Active Substance: ELEXACAFTOR\IVACAFTOR\TEZACAFTOR
  11. VITAMIN D [Concomitant]
     Active Substance: VITAMIN D NOS

REACTIONS (1)
  - Cystic fibrosis [None]
